FAERS Safety Report 7024614-8 (Version None)
Quarter: 2010Q4

REPORT INFORMATION
  Report Type: 
  Country: None (occurrence: None)
  Receive Date: 20101001
  Receipt Date: 20100803
  Transmission Date: 20110411
  Serious: No
  Sender: FDA-Public Use
  Company Number: US-JNJFOC-20100510549

PATIENT
  Sex: Female

DRUGS (19)
  1. INVEGA SUSTENNA [Suspect]
     Indication: PRODUCT USED FOR UNKNOWN INDICATION
     Route: 030
  2. INVEGA [Suspect]
     Indication: PRODUCT USED FOR UNKNOWN INDICATION
     Route: 048
  3. VITAMIN D [Concomitant]
  4. LISINOPRIL [Concomitant]
  5. CALCIUM CARBONATE [Concomitant]
  6. MAGNESIUM GLUCONATE [Concomitant]
     Dosage: 27MG/500MG
  7. ASCORBIC ACID [Concomitant]
  8. ALBUTEROL [Concomitant]
     Route: 055
  9. COMBIVENT [Concomitant]
     Route: 055
  10. IPRATROPIUM BROMIDE [Concomitant]
     Route: 055
  11. BACTROBAN [Concomitant]
  12. HYDROXYZINE [Concomitant]
     Indication: PRURITUS
  13. VISTARIL [Concomitant]
     Indication: PRURITUS
     Dosage: 25MG  1-2 EVERY 6HOURS AS NEEDED
  14. SIMVASTATIN [Concomitant]
  15. LAMICTAL [Concomitant]
     Dosage: 25 MG TITRATE TO 150 MG AT BEDTIME
  16. LEVOXYL [Concomitant]
  17. PRILOSEC [Concomitant]
  18. THEOPHYLLINE [Concomitant]
  19. TEGRETOL [Concomitant]
     Dosage: 1BID AND 2 AT BEDTIME

REACTIONS (3)
  - BURNING SENSATION [None]
  - PRURITUS [None]
  - SKIN LESION [None]
